FAERS Safety Report 24087163 (Version 3)
Quarter: 2025Q1

REPORT INFORMATION
  Report Type: Report from Study
  Country: US (occurrence: US)
  Receive Date: 20240713
  Receipt Date: 20250128
  Transmission Date: 20250409
  Serious: Yes (Other)
  Sender: SANOFI AVENTIS
  Company Number: US-SA-SAC20240712000330

PATIENT
  Age: 79 Year
  Sex: Female
  Weight: 77.1 kg

DRUGS (12)
  1. DUPILUMAB [Suspect]
     Active Substance: DUPILUMAB
     Indication: Dermatitis atopic
     Route: 058
  2. DUPILUMAB [Suspect]
     Active Substance: DUPILUMAB
     Indication: Asthma
     Dosage: 300 MG, QOW
     Route: 058
  3. TRELEGY ELLIPTA [Concomitant]
     Active Substance: FLUTICASONE FUROATE\UMECLIDINIUM BROMIDE\VILANTEROL TRIFENATATE
  4. GABAPENTIN [Concomitant]
     Active Substance: GABAPENTIN
  5. CORTISONE [Concomitant]
     Active Substance: CORTISONE
  6. TOPROL XL [Concomitant]
     Active Substance: METOPROLOL SUCCINATE
  7. EVISTA [Concomitant]
     Active Substance: RALOXIFENE HYDROCHLORIDE
  8. ALLEGRA ALLERGY [Concomitant]
     Active Substance: FEXOFENADINE HYDROCHLORIDE
  9. VITAMINS NOS [Concomitant]
     Active Substance: VITAMINS
  10. PAXIL [Concomitant]
     Active Substance: PAROXETINE HYDROCHLORIDE
  11. CORTISONE ACETATE [Concomitant]
     Active Substance: CORTISONE ACETATE
  12. PROTONIX [Concomitant]
     Active Substance: PANTOPRAZOLE SODIUM

REACTIONS (5)
  - Pneumonia [Unknown]
  - Sternal fracture [Unknown]
  - Road traffic accident [Unknown]
  - Pain [Unknown]
  - Laryngitis [Unknown]

NARRATIVE: CASE EVENT DATE: 20240905
